FAERS Safety Report 8135796-9 (Version None)
Quarter: 2012Q1

REPORT INFORMATION
  Report Type: 
  Country: None (occurrence: None)
  Receive Date: 20120103
  Receipt Date: 20111104
  Transmission Date: 20120608
  Serious: No
  Sender: FDA-Public Use
  Company Number: AE-2011-003090

PATIENT
  Age: 55 Year
  Sex: Female
  Weight: 61.2356 kg

DRUGS (7)
  1. BENADRYL [Concomitant]
  2. XANAX [Concomitant]
  3. PROBIOTICS (LACTOBACILLUS REUTERI) [Concomitant]
  4. PEGASYS [Concomitant]
  5. IBUPROFEN [Concomitant]
  6. COPEGUS [Concomitant]
  7. INCIVEK [Suspect]
     Dosage: 2250 MG (750 MG, 1 IN 8 HR), ORAL
     Route: 048
     Dates: start: 20110920, end: 20111025

REACTIONS (8)
  - WEIGHT INCREASED [None]
  - ANGER [None]
  - HYPERSOMNIA [None]
  - SPEECH DISORDER [None]
  - TREMOR [None]
  - RETCHING [None]
  - DRUG INEFFECTIVE [None]
  - ABDOMINAL DISCOMFORT [None]
